FAERS Safety Report 16258010 (Version 1)
Quarter: 2019Q2

REPORT INFORMATION
  Report Type: Spontaneous
  Country: US (occurrence: US)
  Receive Date: 20190430
  Receipt Date: 20190430
  Transmission Date: 20190711
  Serious: Yes (Other)
  Sender: FDA-Public Use
  Company Number: US-ELI_LILLY_AND_COMPANY-US201904013645

PATIENT
  Sex: Female

DRUGS (1)
  1. FORTEO [Suspect]
     Active Substance: TERIPARATIDE
     Indication: OSTEOPOROSIS
     Dosage: UNK, UNKNOWN
     Route: 065
     Dates: start: 201709

REACTIONS (7)
  - Palpitations [Unknown]
  - Nausea [Unknown]
  - Drug ineffective [Unknown]
  - Electrocardiogram T wave inversion [Unknown]
  - Dizziness [Unknown]
  - Left atrial enlargement [Unknown]
  - Hand fracture [Unknown]

NARRATIVE: CASE EVENT DATE: 20190312
